FAERS Safety Report 5870477-3 (Version None)
Quarter: 2008Q3

REPORT INFORMATION
  Report Type: 
  Country: None (occurrence: None)
  Receive Date: 20080904
  Receipt Date: 20080319
  Transmission Date: 20090109
  Serious: Yes (Other)
  Sender: FDA-Public Use
  Company Number: US-BRISTOL-MYERS SQUIBB COMPANY-14093025

PATIENT
  Age: 71 Year
  Sex: Male

DRUGS (6)
  1. DEFINITY [Suspect]
     Indication: ULTRASOUND SCAN
     Dosage: 8.5 CC SALINE WITH 1.5 CC DEFINITY.
     Route: 042
     Dates: start: 20080226, end: 20080226
  2. ATENOLOL [Concomitant]
  3. VYTORIN [Concomitant]
  4. METFORMIN HCL [Concomitant]
  5. DIOVAN HCT [Concomitant]
  6. GLIPIZIDE [Concomitant]

REACTIONS (1)
  - BLOOD PRESSURE DECREASED [None]
